FAERS Safety Report 7760900-1 (Version None)
Quarter: 2011Q3

REPORT INFORMATION
  Report Type: 
  Country: None (occurrence: None)
  Receive Date: 20110919
  Receipt Date: 20110915
  Transmission Date: 20111222
  Serious: Yes (Hospitalization, Other)
  Sender: FDA-Public Use
  Company Number: JP-MERCK-1108USA03263

PATIENT
  Age: 11 Year
  Sex: Male

DRUGS (35)
  1. DIAZEPAM [Suspect]
     Route: 048
     Dates: start: 20100622, end: 20100722
  2. RISPERDAL [Suspect]
     Route: 048
     Dates: start: 20100702, end: 20100714
  3. TRICLORYL [Suspect]
     Route: 048
     Dates: start: 20100628, end: 20100705
  4. LANSOPRAZOLE [Suspect]
     Route: 048
     Dates: start: 20100628, end: 20100728
  5. LASIX [Suspect]
     Route: 048
     Dates: start: 20100626, end: 20100706
  6. XYLOCAINE [Suspect]
     Route: 042
     Dates: start: 20100621, end: 20100709
  7. GLYCEOL (FRUCTOSE (+) GLYCERIN (+) SODIUM CHLORIDE) [Suspect]
     Route: 042
     Dates: start: 20100617, end: 20100618
  8. PEPCID [Suspect]
     Route: 048
     Dates: start: 20100626, end: 20100715
  9. CEFAZOLIN [Suspect]
     Route: 042
     Dates: start: 20100622, end: 20100624
  10. LAXOBERON [Suspect]
     Route: 048
     Dates: start: 20100620, end: 20100620
  11. ROCURONIUM BROMIDE [Suspect]
     Route: 042
     Dates: start: 20100617, end: 20100706
  12. PANTOL [Suspect]
     Route: 042
     Dates: start: 20100604, end: 20100705
  13. EPINEPHRINE [Suspect]
     Route: 042
     Dates: start: 20100621, end: 20100621
  14. ULTIVA [Suspect]
     Route: 042
     Dates: start: 20100621, end: 20100708
  15. PRECEDEX [Suspect]
     Route: 042
     Dates: start: 20100704, end: 20100705
  16. ACETAMINOPHEN [Suspect]
     Route: 054
     Dates: start: 20100630, end: 20100716
  17. MIDAZOLAM HCL [Suspect]
     Route: 042
     Dates: start: 20100617, end: 20100709
  18. DIAZEPAM [Suspect]
     Route: 048
     Dates: start: 20110702, end: 20110722
  19. ROCEPHIN [Suspect]
     Indication: INFECTION
     Route: 042
     Dates: start: 20100630, end: 20100707
  20. MIDAZOLAM HCL [Suspect]
     Route: 042
     Dates: start: 20100621, end: 20100621
  21. ALDACTONE [Suspect]
     Route: 048
     Dates: start: 20100626, end: 20100706
  22. DEPAS [Suspect]
     Route: 048
     Dates: start: 20100701, end: 20100701
  23. DECADRON [Suspect]
     Route: 042
     Dates: start: 20100617, end: 20100623
  24. LACTOBACILLUS CASEI [Suspect]
     Route: 048
     Dates: start: 20100702, end: 20100709
  25. CALCIUM CARBONATE [Suspect]
     Route: 042
     Dates: start: 20100621, end: 20100621
  26. FENTANYL [Suspect]
     Route: 042
     Dates: start: 20100621, end: 20100708
  27. NICARDIPINE HCL [Suspect]
     Route: 042
     Dates: start: 20100622, end: 20100624
  28. DIAZEPAM [Suspect]
     Route: 042
     Dates: start: 20100702, end: 20100722
  29. GLYCERIN [Suspect]
     Indication: CONSTIPATION
     Route: 054
     Dates: start: 20100621
  30. PEPCID [Suspect]
     Route: 042
     Dates: start: 20100617, end: 20100626
  31. PHENOBARBITAL TAB [Suspect]
     Route: 048
     Dates: start: 20100622, end: 20100709
  32. ACETAMINOPHEN [Suspect]
     Indication: PYREXIA
     Route: 048
     Dates: start: 20100627, end: 20100716
  33. MORPHINE [Suspect]
     Route: 042
     Dates: start: 20100621, end: 20100709
  34. HEPARIN SODIUM [Suspect]
     Dosage: 2 DF, UID/QD
     Route: 042
     Dates: start: 20100617
  35. ATROPINE SULFATE [Suspect]
     Route: 042
     Dates: start: 20100617, end: 20100622

REACTIONS (1)
  - DRUG RASH WITH EOSINOPHILIA AND SYSTEMIC SYMPTOMS [None]
